FAERS Safety Report 8876008 (Version 1)
Quarter: 2012Q4

REPORT INFORMATION
  Report Type: 
  Country: CA (occurrence: CA)
  Receive Date: 20121030
  Receipt Date: 20121030
  Transmission Date: 20130627
  Serious: Yes (Other)
  Sender: FDA-Public Use
  Company Number: CA-SHIRE-ALL1-2012-03570

PATIENT
  Age: 59 None
  Sex: Female
  Weight: 66.5 kg

DRUGS (2)
  1. VPRIV [Suspect]
     Indication: GAUCHER^S DISEASE
     Dosage: 4000 IU, 1x/2wks (10 vials)
     Route: 041
  2. TYLENOL /00020001/ [Concomitant]
     Indication: PAIN IN EXTREMITY
     Dosage: UNK, As req^d
     Route: 048
     Dates: start: 20120925

REACTIONS (4)
  - Pain in extremity [Recovering/Resolving]
  - Oedema peripheral [Recovering/Resolving]
  - Joint swelling [Recovering/Resolving]
  - Infusion related reaction [Recovered/Resolved]
